FAERS Safety Report 7913759-3 (Version None)
Quarter: 2011Q4

REPORT INFORMATION
  Report Type: 
  Country: None (occurrence: None)
  Receive Date: 20111115
  Receipt Date: 20111108
  Transmission Date: 20120403
  Serious: Yes (Life-Threatening, Other)
  Sender: FDA-Public Use
  Company Number: FR-BRISTOL-MYERS SQUIBB COMPANY-16221277

PATIENT
  Age: 80 Year
  Sex: Female

DRUGS (2)
  1. COUMADIN [Suspect]
     Indication: ATRIAL FIBRILLATION
     Route: 048
  2. COUMADIN [Suspect]
     Indication: ARRHYTHMIA
     Route: 048

REACTIONS (6)
  - OVERDOSE [None]
  - HAEMORRHAGE [None]
  - HAEMORRHAGIC STROKE [None]
  - STAPHYLOCOCCAL INFECTION [None]
  - CEREBRAL HAEMATOMA [None]
  - HEMIPARESIS [None]
